FAERS Safety Report 15227457 (Version 1)
Quarter: 2018Q3

REPORT INFORMATION
  Report Type: Spontaneous
  Country: PH (occurrence: PH)
  Receive Date: 20180801
  Receipt Date: 20180801
  Transmission Date: 20181010
  Serious: Yes (Hospitalization)
  Sender: FDA-Public Use
  Company Number: PH-SHENZHEN TECHDOW PHARMACEUTICAL CO. LTD-PH-2018TEC0000039

PATIENT
  Age: 55 Year
  Sex: Male

DRUGS (4)
  1. ASPIRIN                            /00002701/ [Suspect]
     Active Substance: ASPIRIN
     Indication: CORONARY ARTERY BYPASS
     Dosage: UNK
  2. CLOPIDOGREL [Suspect]
     Active Substance: CLOPIDOGREL BISULFATE
     Indication: CORONARY ARTERY BYPASS
     Dosage: UNK
  3. HEPARIN SODIUM INJECTION USP, PRESERVATIVE FREE [Suspect]
     Active Substance: HEPARIN SODIUM
     Indication: CORONARY ARTERY BYPASS
     Dosage: 5000 IU, UNK
     Route: 013
  4. HEPARIN SODIUM INJECTION USP, PRESERVATIVE FREE [Suspect]
     Active Substance: HEPARIN SODIUM
     Dosage: UNK, ADDITIONAL HEPARIN DOSE
     Route: 013

REACTIONS (3)
  - Cardiac tamponade [Recovering/Resolving]
  - Coronary artery perforation [Recovering/Resolving]
  - Pericardial effusion [Recovering/Resolving]
